FAERS Safety Report 8883569 (Version 1)
Quarter: 2012Q4

REPORT INFORMATION
  Report Type: 
  Country: US (occurrence: US)
  Receive Date: 20121102
  Receipt Date: 20121102
  Transmission Date: 20130627
  Serious: No
  Sender: FDA-Public Use
  Company Number: US-ASTRAZENECA-2012SE02574

PATIENT
  Age: 65 Year
  Sex: Female
  Weight: 90.7 kg

DRUGS (12)
  1. CRESTOR [Suspect]
     Indication: BLOOD CHOLESTEROL INCREASED
     Route: 048
  2. TRICOR [Concomitant]
     Indication: BLOOD TRIGLYCERIDES ABNORMAL
  3. PRILOSEC [Concomitant]
     Indication: GASTROOESOPHAGEAL REFLUX DISEASE
  4. PROZAC [Concomitant]
     Indication: DEPRESSION
  5. XANAX [Concomitant]
     Indication: ANXIETY
  6. ASPIRIN [Concomitant]
  7. ACCUTANE [Concomitant]
  8. VITAMIN [Concomitant]
  9. L-CARNITINE [Concomitant]
  10. SUPER DIGEST AWAY [Concomitant]
  11. BIOTIN [Concomitant]
  12. FOLIC ACID OTC [Concomitant]

REACTIONS (2)
  - Burning sensation [Unknown]
  - Activities of daily living impaired [Unknown]
